FAERS Safety Report 11202817 (Version 5)
Quarter: 2016Q3

REPORT INFORMATION
  Report Type: Spontaneous
  Country: US (occurrence: US)
  Receive Date: 20150619
  Receipt Date: 20160923
  Transmission Date: 20161109
  Serious: Yes (Hospitalization, Other)
  Sender: FDA-Public Use
  Company Number: US-009507513-1506USA009594

PATIENT
  Sex: Female

DRUGS (4)
  1. CORTICOSTEROIDS (UNSPECIFIED) [Concomitant]
     Active Substance: UNSPECIFIED INGREDIENT
     Indication: PRODUCT USED FOR UNKNOWN INDICATION
     Dosage: UNK
     Route: 065
     Dates: start: 1980
  2. ALENDRONATE SODIUM. [Suspect]
     Active Substance: ALENDRONATE SODIUM
     Indication: OSTEOPOROSIS
     Dosage: 70 MG, QW
     Route: 048
     Dates: start: 200802, end: 200905
  3. FOSAMAX [Suspect]
     Active Substance: ALENDRONATE SODIUM
     Indication: OSTEOPOROSIS
     Dosage: 70 MG, QW
     Route: 048
     Dates: start: 2005, end: 200801
  4. FOSAMAX [Suspect]
     Active Substance: ALENDRONATE SODIUM
     Dosage: 70 MG, QW
     Route: 048
     Dates: start: 2009

REACTIONS (21)
  - Wrist fracture [Unknown]
  - Fall [Unknown]
  - Cardiac murmur [Unknown]
  - Femur fracture [Unknown]
  - Clostridium difficile infection [Unknown]
  - Glaucoma [Unknown]
  - Unevaluable event [Unknown]
  - Urinary tract infection [Unknown]
  - Femur fracture [Unknown]
  - Hypoglycaemia [Unknown]
  - Hyperlipidaemia [Unknown]
  - Vascular calcification [Unknown]
  - Immunoglobulins decreased [Unknown]
  - Hypothyroidism [Unknown]
  - Splenectomy [Unknown]
  - Ankle fracture [Unknown]
  - Haemorrhagic anaemia [Recovering/Resolving]
  - Laceration [Unknown]
  - Depression [Unknown]
  - Loss of consciousness [Unknown]
  - Hypertension [Unknown]

NARRATIVE: CASE EVENT DATE: 20060625
